FAERS Safety Report 5044903-6 (Version None)
Quarter: 2006Q3

REPORT INFORMATION
  Report Type: 
  Country: None (occurrence: None)
  Receive Date: 20060707
  Receipt Date: 20060630
  Transmission Date: 20061208
  Serious: Yes (Death, Other)
  Sender: FDA-Public Use
  Company Number: DE-AVENTIS-200611920DE

PATIENT
  Age: 87 Year
  Sex: Male
  Weight: 85 kg

DRUGS (3)
  1. CLEXANE [Suspect]
     Indication: BRONCHOSCOPY
     Route: 058
     Dates: start: 20060601, end: 20060601
  2. CLEXANE [Suspect]
     Indication: THROMBOSIS PROPHYLAXIS
     Route: 058
     Dates: start: 20060601, end: 20060601
  3. MARCUMAR [Concomitant]

REACTIONS (5)
  - ABDOMINAL PAIN [None]
  - HAEMORRHAGE [None]
  - RENAL FAILURE [None]
  - RETROPERITONEAL HAEMATOMA [None]
  - SHOCK HAEMORRHAGIC [None]
